FAERS Safety Report 15893072 (Version 1)
Quarter: 2019Q1

REPORT INFORMATION
  Report Type: Report from Study
  Country: US (occurrence: US)
  Receive Date: 20190130
  Receipt Date: 20190130
  Transmission Date: 20190417
  Serious: No
  Sender: FDA-Public Use
  Company Number: US-EXELIXIS-CABO-18015334

PATIENT
  Sex: Male
  Weight: 55.32 kg

DRUGS (3)
  1. DULCOLAX NOS [Concomitant]
     Active Substance: BISACODYL OR DOCUSATE SODIUM
     Dosage: UNK
  2. SENNOKOTT [Concomitant]
     Dosage: UNK
  3. CABOMETYX [Suspect]
     Active Substance: CABOZANTINIB S-MALATE
     Indication: RENAL CANCER
     Dosage: 60 MG, QD AM WITHOUT FOOD
     Dates: start: 20180721

REACTIONS (11)
  - Weight decreased [Unknown]
  - Constipation [Unknown]
  - Disturbance in attention [Unknown]
  - Fatigue [Unknown]
  - Confusional state [Unknown]
  - Asthenia [Unknown]
  - Blister [Unknown]
  - Amnesia [Unknown]
  - Tongue discomfort [Unknown]
  - Throat tightness [Unknown]
  - Decreased appetite [Unknown]

NARRATIVE: CASE EVENT DATE: 2018
